FAERS Safety Report 6454330-2 (Version None)
Quarter: 2009Q4

REPORT INFORMATION
  Report Type: 
  Country: None (occurrence: None)
  Receive Date: 20091124
  Receipt Date: 20091117
  Transmission Date: 20100525
  Serious: Yes (Life-Threatening, Hospitalization)
  Sender: FDA-Public Use
  Company Number: FR-WYE-H12285609

PATIENT
  Age: 87 Year
  Sex: Female

DRUGS (6)
  1. CORDARONE [Suspect]
     Indication: DRUG USE FOR UNKNOWN INDICATION
     Route: 048
     Dates: end: 20090223
  2. HEMIGOXINE NATIVELLE [Concomitant]
     Dosage: DOSE UNKNOWN
     Route: 065
     Dates: start: 20090228
  3. TAVANIC [Concomitant]
     Dosage: DOSE UNKNOWN
     Route: 065
     Dates: start: 20090225, end: 20090303
  4. BACTRIM DS [Concomitant]
     Dosage: DOSE UNKNOWN
     Route: 065
     Dates: start: 20090303, end: 20090313
  5. PREVISCAN [Interacting]
     Indication: DRUG USE FOR UNKNOWN INDICATION
     Route: 048
  6. AMOXICILLIN AND CLAVULANATE POTASSIUM [Interacting]
     Indication: PRODUCTIVE COUGH
     Route: 048
     Dates: start: 20090201, end: 20090201

REACTIONS (2)
  - DRUG INTERACTION [None]
  - INTERNATIONAL NORMALISED RATIO INCREASED [None]
